FAERS Safety Report 8270024-5 (Version None)
Quarter: 2012Q2

REPORT INFORMATION
  Report Type: 
  Country: None (occurrence: None)
  Receive Date: 20120405
  Receipt Date: 20110811
  Transmission Date: 20120825
  Serious: Yes (Hospitalization)
  Sender: FDA-Public Use
  Company Number: GB-023541

PATIENT
  Age: 66 Year
  Sex: Female

DRUGS (2)
  1. (CHLORAMBUCIL) [Suspect]
     Indication: CHRONIC LYMPHOCYTIC LEUKAEMIA
     Dosage: 16 MG, 16 MG QD, ORAL
     Route: 048
     Dates: start: 20101105
  2. (RITUXIMAB) [Suspect]
     Indication: CHRONIC LYMPHOCYTIC LEUKAEMIA
     Dosage: 580MG PER MONTH INTRAVENOUS (NOTOTHERWISE SPECIFIED)
     Route: 042
     Dates: start: 20101105

REACTIONS (2)
  - BLOOD CREATINE INCREASED [None]
  - VOMITING [None]
